FAERS Safety Report 11145308 (Version 2)
Quarter: 2015Q2

REPORT INFORMATION
  Report Type: Report from Study
  Country: US (occurrence: US)
  Receive Date: 20150528
  Receipt Date: 20150619
  Transmission Date: 20150821
  Serious: Yes (Death, Hospitalization)
  Sender: FDA-Public Use
  Company Number: US-ROCHE-1563625

PATIENT
  Age: 65 Year
  Sex: Male

DRUGS (14)
  1. TAS-114 [Suspect]
     Active Substance: INVESTIGATIONAL PRODUCT
     Indication: HEPATIC CANCER METASTATIC
     Dosage: CYCLE 1 LAST DOSE PRIOR TO SAE: 07/APR/2015?THERAPY DURATION: 6 DAYS
     Route: 048
     Dates: start: 20150402, end: 20150409
  2. HYDROCHLOROTHIAZIDE. [Concomitant]
     Active Substance: HYDROCHLOROTHIAZIDE
     Indication: HYPERTENSION
  3. LEVOXYL [Concomitant]
     Active Substance: LEVOTHYROXINE SODIUM
     Indication: HYPOTHYROIDISM
     Dosage: AS REQUIRED
     Route: 065
  4. VITAMIN D3 [Concomitant]
     Active Substance: CHOLECALCIFEROL
     Indication: NUTRITIONAL SUPPLEMENTATION
  5. CAPECITABINE. [Suspect]
     Active Substance: CAPECITABINE
     Indication: HEPATIC CANCER METASTATIC
     Dosage: CYCLE 1, LAST DOSE PRIOR TO SAE: 07/APR/2015?THERAPY DURATION: 6 DAYS
     Route: 048
     Dates: start: 20150402, end: 20150409
  6. PAXIL (UNITED STATES) [Concomitant]
     Indication: DEPRESSION
  7. ACIPHEX [Concomitant]
     Active Substance: RABEPRAZOLE SODIUM
     Indication: GASTROOESOPHAGEAL REFLUX DISEASE
     Dosage: AS REQUIRED
     Route: 065
  8. METFORMIN [Concomitant]
     Active Substance: METFORMIN HYDROCHLORIDE
     Indication: DIABETES MELLITUS
     Dosage: AS REQUIRED
     Route: 065
  9. FLOMAX (UNITED STATES) [Concomitant]
     Indication: BENIGN PROSTATIC HYPERPLASIA
     Dosage: AS REQUIRED
     Route: 065
  10. ADVIL [Concomitant]
     Active Substance: IBUPROFEN
     Indication: PAIN
  11. LANTUS [Concomitant]
     Active Substance: INSULIN GLARGINE
     Indication: DIABETES MELLITUS
     Dosage: AS REQUIRED
     Route: 065
  12. SPIRONOLACTONE. [Concomitant]
     Active Substance: SPIRONOLACTONE
     Indication: ASCITES
     Dosage: AS REQUIRED
     Route: 065
     Dates: start: 20150330
  13. CRESTOR [Concomitant]
     Active Substance: ROSUVASTATIN CALCIUM
     Indication: BLOOD CHOLESTEROL INCREASED
     Dosage: AS REQUIRED
     Route: 065
  14. AMITIZA [Concomitant]
     Active Substance: LUBIPROSTONE
     Indication: CONSTIPATION

REACTIONS (2)
  - Anaemia [Recovered/Resolved with Sequelae]
  - Disease progression [Fatal]

NARRATIVE: CASE EVENT DATE: 20150407
